FAERS Safety Report 20430541 (Version 1)
Quarter: 2022Q1

REPORT INFORMATION
  Report Type: Report from Study
  Country: FR (occurrence: FR)
  Receive Date: 20220204
  Receipt Date: 20220204
  Transmission Date: 20220423
  Serious: Yes (Hospitalization, Other)
  Sender: FDA-Public Use
  Company Number: FR-SERVIER-S20011098

PATIENT

DRUGS (8)
  1. PEGASPARGASE [Suspect]
     Active Substance: PEGASPARGASE
     Indication: Acute lymphocytic leukaemia
     Dosage: 1450 IU, QD ON D4
     Route: 042
     Dates: start: 20181116, end: 20181116
  2. TN UNSPECIFIED [Concomitant]
     Indication: Acute lymphocytic leukaemia
     Dosage: 0.8 MG, ON D1, D8, D15
     Route: 042
     Dates: start: 20181114, end: 20181128
  3. ADRIAMYCIN [Concomitant]
     Active Substance: DOXORUBICIN HYDROCHLORIDE
     Indication: Acute lymphocytic leukaemia
     Dosage: 14.4 MG, ON D1, D8, D15
     Route: 042
     Dates: start: 20181114, end: 20181128
  4. TN UNSPECIFIED [Concomitant]
     Indication: Acute lymphocytic leukaemia
     Dosage: 12 MG, ON D4, D31
     Route: 037
     Dates: start: 20181116, end: 20181214
  5. TN UNSPECIFIED [Concomitant]
     Indication: Acute lymphocytic leukaemia
     Dosage: 5.4 MG, D1 TO D5
     Route: 048
     Dates: start: 20181114, end: 20181128
  6. TN UNSPECIFIED [Concomitant]
     Indication: Acute lymphocytic leukaemia
     Dosage: 720 MG, ON D29
     Route: 042
     Dates: start: 20181212, end: 20181212
  7. TN UNSPECIFIED [Concomitant]
     Indication: Acute lymphocytic leukaemia
     Dosage: 30 MG, D29 TO D42
     Route: 048
     Dates: start: 20181212, end: 20181225
  8. TN UNSPECIFIED [Concomitant]
     Indication: Acute lymphocytic leukaemia
     Dosage: 40 MG, D31 TO D34, D38 TO D41
     Route: 042
     Dates: start: 20181214, end: 20181224

REACTIONS (2)
  - Thrombocytopenia [Recovered/Resolved]
  - Pseudomonal sepsis [Unknown]

NARRATIVE: CASE EVENT DATE: 20181129
